FAERS Safety Report 11954747 (Version 3)
Quarter: 2018Q2

REPORT INFORMATION
  Report Type: Spontaneous
  Country: SK (occurrence: SK)
  Receive Date: 20160126
  Receipt Date: 20180528
  Transmission Date: 20180711
  Serious: Yes (Hospitalization)
  Sender: FDA-Public Use
  Company Number: SK-ELI_LILLY_AND_COMPANY-SK201601007835

PATIENT
  Age: 31 Year
  Sex: Male

DRUGS (7)
  1. ZYPADHERA [Suspect]
     Active Substance: OLANZAPINE PAMOATE
     Indication: SCHIZOPHRENIA
     Dosage: 300 MG, UNKNOWN
     Route: 030
     Dates: start: 20151119, end: 20151119
  2. HALOPERIDOL. [Concomitant]
     Active Substance: HALOPERIDOL
     Indication: SCHIZOPHRENIA
     Dosage: 2.5 ML, QID
     Route: 065
  3. OLANZAPINE. [Suspect]
     Active Substance: OLANZAPINE
     Dosage: 10 MG, DAILY
     Route: 048
     Dates: start: 20151119, end: 20151124
  4. AKINETON [Concomitant]
     Active Substance: BIPERIDEN HYDROCHLORIDE
     Indication: SCHIZOPHRENIA
     Dosage: 2 MG, TID
     Route: 065
  5. OLANZAPINE. [Suspect]
     Active Substance: OLANZAPINE
     Indication: SCHIZOPHRENIA
     Dosage: 10 MG, BID
     Route: 048
     Dates: start: 20151026, end: 20151119
  6. ZYPADHERA [Suspect]
     Active Substance: OLANZAPINE PAMOATE
     Dosage: 300 MG, UNKNOWN
     Route: 030
     Dates: start: 20151203, end: 20151203
  7. OLANZAPINE. [Suspect]
     Active Substance: OLANZAPINE
     Dosage: 5 MG, DAILY
     Route: 048
     Dates: start: 20151124

REACTIONS (11)
  - Confusional state [Recovered/Resolved]
  - Heart rate increased [Recovered/Resolved]
  - Disorientation [Recovered/Resolved]
  - Overdose [Unknown]
  - Blood pressure decreased [Recovered/Resolved]
  - Somnolence [Recovered/Resolved]
  - Urinary incontinence [Recovered/Resolved]
  - Dysarthria [Recovered/Resolved]
  - Post-injection delirium sedation syndrome [Recovered/Resolved]
  - Pallor [Recovered/Resolved]
  - Asthenia [Recovered/Resolved]

NARRATIVE: CASE EVENT DATE: 20151203
